FAERS Safety Report 14304146 (Version 1)
Quarter: 2017Q4

REPORT INFORMATION
  Report Type: Spontaneous
  Country: ES (occurrence: ES)
  Receive Date: 20171219
  Receipt Date: 20171219
  Transmission Date: 20180321
  Serious: Yes (Other)
  Sender: FDA-Public Use
  Company Number: ES-OTSUKA-DJ201404358

PATIENT
  Age: 14 Year
  Sex: Male

DRUGS (7)
  1. ABILIFY [Suspect]
     Active Substance: ARIPIPRAZOLE
     Indication: DISSOCIATIVE DISORDER
  2. SERTRALINE [Concomitant]
     Active Substance: SERTRALINE HYDROCHLORIDE
     Indication: PRODUCT USED FOR UNKNOWN INDICATION
     Dosage: 50 MG, BID, TOTAL DOSE: 100MG
     Route: 065
  3. CLORAZEPATE [Concomitant]
     Active Substance: CLORAZEPATE DIPOTASSIUM
     Indication: PRODUCT USED FOR UNKNOWN INDICATION
     Dosage: UNK
     Route: 065
  4. ABILIFY [Suspect]
     Active Substance: ARIPIPRAZOLE
     Indication: SCHIZOPHRENIA
  5. ABILIFY [Suspect]
     Active Substance: ARIPIPRAZOLE
     Indication: EMOTIONAL DISORDER OF CHILDHOOD
  6. ABILIFY [Suspect]
     Active Substance: ARIPIPRAZOLE
     Indication: GENERALISED ANXIETY DISORDER
  7. ABILIFY [Suspect]
     Active Substance: ARIPIPRAZOLE
     Indication: PSYCHOTIC DISORDER
     Dosage: NOV13-UNKN: 10MG
     Route: 065

REACTIONS (6)
  - Mania [Unknown]
  - Intentional self-injury [Unknown]
  - Aggression [Unknown]
  - Abnormal behaviour [Unknown]
  - Off label use [Unknown]
  - Suicide attempt [Unknown]
